FAERS Safety Report 21304863 (Version 1)
Quarter: 2022Q3

REPORT INFORMATION
  Report Type: Spontaneous
  Country: US (occurrence: US)
  Receive Date: 20220907
  Receipt Date: 20220907
  Transmission Date: 20221027
  Serious: Yes (Death)
  Sender: FDA-Public Use
  Company Number: US-GE HEALTHCARE-2022CSU006267

PATIENT
  Age: 76 Year
  Sex: Male

DRUGS (4)
  1. VISIPAQUE [Suspect]
     Active Substance: IODIXANOL
     Indication: Angiocardiogram
     Dosage: UNK UNK, SINGLE
     Route: 013
  2. VISIPAQUE [Suspect]
     Active Substance: IODIXANOL
     Indication: Angina pectoris
  3. PREDNISONE [Concomitant]
     Active Substance: PREDNISONE
     Indication: Angiocardiogram
     Dosage: UNK
  4. DIPHENHYDRAMINE [Concomitant]
     Active Substance: DIPHENHYDRAMINE
     Indication: Angiocardiogram
     Dosage: UNK

REACTIONS (1)
  - Kounis syndrome [Fatal]
